FAERS Safety Report 8831529 (Version 1)
Quarter: 2012Q4

REPORT INFORMATION
  Report Type: 
  Country: JP (occurrence: JP)
  Receive Date: 20121008
  Receipt Date: 20121008
  Transmission Date: 20130627
  Serious: Yes (Other)
  Sender: FDA-Public Use
  Company Number: JP-GLAXOSMITHKLINE-B0835730A

PATIENT
  Age: 33 Year
  Sex: Female

DRUGS (8)
  1. ZOVIRAX [Suspect]
     Indication: PRODUCT USED FOR UNKNOWN INDICATION
     Route: 048
  2. DEXAMETHASONE [Suspect]
     Indication: PRODUCT USED FOR UNKNOWN INDICATION
     Route: 065
  3. CEFTRIAXONE SODIUM [Suspect]
     Indication: PRODUCT USED FOR UNKNOWN INDICATION
     Route: 065
  4. PREDNISOLONE [Suspect]
     Indication: PRODUCT USED FOR UNKNOWN INDICATION
     Route: 065
  5. MEROPENEM [Suspect]
     Indication: PRODUCT USED FOR UNKNOWN INDICATION
     Route: 065
  6. PHENYTOIN [Suspect]
     Indication: PRODUCT USED FOR UNKNOWN INDICATION
     Route: 048
  7. OSELTAMIVIR PHOSPHATE [Concomitant]
     Indication: INFLUENZA B VIRUS TEST POSITIVE
     Route: 048
  8. FLOMOXEF SODIUM [Concomitant]
     Route: 042

REACTIONS (5)
  - Drug-induced liver injury [Unknown]
  - Blood bilirubin increased [Unknown]
  - Liver disorder [Unknown]
  - Live birth [Unknown]
  - Exposure during pregnancy [Unknown]
